FAERS Safety Report 15765851 (Version 8)
Quarter: 2020Q2

REPORT INFORMATION
  Report Type: Spontaneous
  Country: US (occurrence: US)
  Receive Date: 20181227
  Receipt Date: 20200506
  Transmission Date: 20200713
  Serious: Yes (Other)
  Sender: FDA-Public Use
  Company Number: US-SA-2018SA392104

PATIENT
  Age: 67 Year
  Sex: Male

DRUGS (2)
  1. TOUJEO [Suspect]
     Active Substance: INSULIN GLARGINE
     Indication: TYPE 2 DIABETES MELLITUS
     Dosage: 45 IU, QD
     Route: 065
  2. TOUJEO [Suspect]
     Active Substance: INSULIN GLARGINE
     Dosage: 30 IU, BID (MORNING AND EVENING)
     Route: 065

REACTIONS (6)
  - Blood glucose increased [Unknown]
  - Product dose omission [Unknown]
  - Device operational issue [Unknown]
  - Inappropriate schedule of product administration [Unknown]
  - Cataract [Unknown]
  - Visual impairment [Unknown]
